FAERS Safety Report 24625409 (Version 1)
Quarter: 2024Q4

REPORT INFORMATION
  Report Type: Spontaneous
  Country: US (occurrence: None)
  Receive Date: 20241115
  Receipt Date: 20241115
  Transmission Date: 20250115
  Serious: Yes (Hospitalization)
  Sender: Public
  Company Number: None

PATIENT
  Age: 72 Year
  Sex: Male

DRUGS (1)
  1. ATORVASTATIN CALCIUM [Suspect]
     Active Substance: ATORVASTATIN CALCIUM
     Indication: Hyperlipidaemia
     Dosage: 80.00 MG DAILY

REACTIONS (6)
  - Myalgia [None]
  - Rhabdomyolysis [None]
  - Diarrhoea [None]
  - Pneumonia [None]
  - Blood creatine phosphokinase increased [None]
  - Muscular weakness [None]

NARRATIVE: CASE EVENT DATE: 20240913
